FAERS Safety Report 8578980 (Version 2)
Quarter: 2013Q2

REPORT INFORMATION
  Report Type: Spontaneous
  Country: US (occurrence: US)
  Receive Date: 20120524
  Receipt Date: 20130628
  Transmission Date: 20140414
  Serious: No
  Sender: FDA-Public Use
  Company Number: US-ASTRAZENECA-2012SE30537

PATIENT
  Age: 14 Year
  Sex: Male
  Weight: 79.4 kg

DRUGS (16)
  1. SEROQUEL [Suspect]
     Indication: BIPOLAR DISORDER
     Route: 048
  2. SEROQUEL [Suspect]
     Indication: ATTENTION DEFICIT/HYPERACTIVITY DISORDER
     Route: 048
  3. SEROQUEL [Suspect]
     Indication: OBSESSIVE-COMPULSIVE DISORDER
     Route: 048
  4. SEROQUEL [Suspect]
     Indication: ABNORMAL BEHAVIOUR
     Route: 048
  5. SEROQUEL [Suspect]
     Indication: BIPOLAR DISORDER
     Dosage: 50 MG, 2 TABLETS IN THE MORNING, 1 TABLET AT 1PM AND 3 TABLETS AT 6PM
     Route: 048
  6. SEROQUEL [Suspect]
     Indication: ATTENTION DEFICIT/HYPERACTIVITY DISORDER
     Dosage: 50 MG, 2 TABLETS IN THE MORNING, 1 TABLET AT 1PM AND 3 TABLETS AT 6PM
     Route: 048
  7. SEROQUEL [Suspect]
     Indication: OBSESSIVE-COMPULSIVE DISORDER
     Dosage: 50 MG, 2 TABLETS IN THE MORNING, 1 TABLET AT 1PM AND 3 TABLETS AT 6PM
     Route: 048
  8. SEROQUEL [Suspect]
     Indication: ABNORMAL BEHAVIOUR
     Dosage: 50 MG, 2 TABLETS IN THE MORNING, 1 TABLET AT 1PM AND 3 TABLETS AT 6PM
     Route: 048
  9. SEROQUEL [Suspect]
     Indication: BIPOLAR DISORDER
     Dosage: GENERIC
     Route: 048
     Dates: start: 201204
  10. SEROQUEL [Suspect]
     Indication: ATTENTION DEFICIT/HYPERACTIVITY DISORDER
     Dosage: GENERIC
     Route: 048
     Dates: start: 201204
  11. SEROQUEL [Suspect]
     Indication: OBSESSIVE-COMPULSIVE DISORDER
     Dosage: GENERIC
     Route: 048
     Dates: start: 201204
  12. SEROQUEL [Suspect]
     Indication: ABNORMAL BEHAVIOUR
     Dosage: GENERIC
     Route: 048
     Dates: start: 201204
  13. RITALIN [Concomitant]
  14. ATARAX [Concomitant]
  15. ABILIFY [Concomitant]
  16. LORATADIN [Concomitant]

REACTIONS (3)
  - Abnormal behaviour [Unknown]
  - Drug intolerance [Unknown]
  - Drug ineffective [Unknown]
